FAERS Safety Report 11963246 (Version 1)
Quarter: 2016Q1

REPORT INFORMATION
  Report Type: Spontaneous
  Country: US (occurrence: None)
  Receive Date: 20160121
  Receipt Date: 20160121
  Transmission Date: 20160526
  Serious: Yes (Other)
  Sender: FDA-Public Use
  Company Number: None

PATIENT
  Age: 60 Year
  Sex: Female
  Weight: 56.7 kg

DRUGS (7)
  1. AVONEX [Suspect]
     Active Substance: INTERFERON BETA-1A
     Indication: MULTIPLE SCLEROSIS
     Dosage: 30 MCG SYRINGE, ONCE A WEEK, INTO THE MUSCLE
     Route: 058
     Dates: start: 20160115, end: 20160115
  2. LIPITOR [Concomitant]
     Active Substance: ATORVASTATIN CALCIUM
  3. AMPYRA (DALFAMPRADINE) [Concomitant]
  4. CENTRUM SILVER [Concomitant]
     Active Substance: MINERALS\VITAMINS
  5. VITAMIN D [Concomitant]
     Active Substance: CHOLECALCIFEROL
  6. LEVOTHYROXIN [Concomitant]
     Active Substance: LEVOTHYROXINE
  7. ASPIRIN. [Concomitant]
     Active Substance: ASPIRIN

REACTIONS (9)
  - Influenza like illness [None]
  - Blister [None]
  - Oral herpes [None]
  - Chills [None]
  - Lacrimation increased [None]
  - Pain in jaw [None]
  - Nasopharyngitis [None]
  - Rhinalgia [None]
  - Ocular hyperaemia [None]

NARRATIVE: CASE EVENT DATE: 20160115
